FAERS Safety Report 20049074 (Version 3)
Quarter: 2022Q1

REPORT INFORMATION
  Report Type: Report from Study
  Country: US (occurrence: US)
  Receive Date: 20211109
  Receipt Date: 20220111
  Transmission Date: 20220423
  Serious: Yes (Other)
  Sender: FDA-Public Use
  Company Number: US-UCBSA-2021051567

PATIENT
  Age: 38 Year
  Sex: Male

DRUGS (30)
  1. LACOSAMIDE [Suspect]
     Active Substance: LACOSAMIDE
     Indication: Seizure
     Dosage: 200 MILLIGRAM, 2X/DAY (BID)
     Route: 048
     Dates: start: 20211027
  2. KEPPRA XR [Suspect]
     Active Substance: LEVETIRACETAM
     Indication: Seizure
     Dosage: 2000 MILLIGRAM, 2X/DAY (BID)
     Route: 048
     Dates: start: 20211027
  3. BACLOFEN [Concomitant]
     Active Substance: BACLOFEN
     Indication: Product used for unknown indication
     Dosage: 10MG AS DIRECTED
     Route: 048
     Dates: start: 20211027
  4. VANICREAM [Concomitant]
     Active Substance: TITANIUM DIOXIDE\ZINC OXIDE
     Indication: Pain
     Dosage: TID AS NEEDED
     Dates: start: 20211027
  5. SENNA TABS [Concomitant]
     Active Substance: SENNOSIDES A AND B
     Indication: Product used for unknown indication
     Dosage: 8.6MG DAILY
     Route: 048
     Dates: start: 20211027
  6. ACETAMINOPHEN [Concomitant]
     Active Substance: ACETAMINOPHEN
     Indication: Product used for unknown indication
     Dosage: 650MG, 1 SUPPOSITORY EVERY 4 HRS AS NEEDED
     Route: 054
     Dates: start: 20211027
  7. ATROPINE SULFATE [Concomitant]
     Active Substance: ATROPINE SULFATE
     Indication: Product used for unknown indication
     Dosage: 1%, 2 DROPS EVERY 4 HOURS AS NEEDED
     Route: 048
     Dates: start: 20211027
  8. BISACODYL [Concomitant]
     Active Substance: BISACODYL
     Indication: Constipation
     Dosage: 10MG 1 SUPPOSITORY DAIL AS NEEDED
     Route: 054
     Dates: start: 20211027
  9. HALOPERIDOL LACTATE [Concomitant]
     Active Substance: HALOPERIDOL LACTATE
     Indication: Nausea
     Dosage: 1MG ORAL/SUBLINGUAL EVEY 4 HRS AS NEEDED
     Route: 048
     Dates: start: 20211027
  10. HALOPERIDOL LACTATE [Concomitant]
     Active Substance: HALOPERIDOL LACTATE
     Indication: Anxiety
  11. HALOPERIDOL LACTATE [Concomitant]
     Active Substance: HALOPERIDOL LACTATE
     Indication: Delirium
  12. SUMATRIPTAN SUCCINATE [Concomitant]
     Active Substance: SUMATRIPTAN SUCCINATE
     Indication: Headache
     Dosage: 50MG PRN MAY REPEAT EVERY 2 HRS
     Route: 048
     Dates: start: 20211027
  13. QUETIAPINE FUMARATE [Concomitant]
     Active Substance: QUETIAPINE FUMARATE
     Indication: Product used for unknown indication
     Dosage: 100MG
     Route: 048
     Dates: start: 20211027
  14. PHENOBARBITAL [Concomitant]
     Active Substance: PHENOBARBITAL
     Indication: Product used for unknown indication
     Dosage: 64.8MG DAILY
     Route: 048
     Dates: start: 20211027
  15. PANTOPRAZOLE SODIUM [Concomitant]
     Active Substance: PANTOPRAZOLE SODIUM
     Indication: Product used for unknown indication
     Dosage: 40MG DAILY
     Route: 048
     Dates: start: 20211027
  16. OXCARBAZEPINE [Concomitant]
     Active Substance: OXCARBAZEPINE
     Indication: Product used for unknown indication
     Dosage: 300MG 2 TABLTES AT BEDTIME
     Route: 048
     Dates: start: 20211027
  17. ONDANSETRON HCL [Concomitant]
     Active Substance: ONDANSETRON HYDROCHLORIDE
     Indication: Product used for unknown indication
     Dosage: 8MG PRN
     Route: 048
     Dates: start: 20211027
  18. TYLENOL PM [Concomitant]
     Active Substance: ACETAMINOPHEN\DIPHENHYDRAMINE
     Indication: Product used for unknown indication
     Dosage: 500-25MG 2 TAB AT BEDTIME
     Route: 048
     Dates: start: 20211027
  19. MELATONIN [Concomitant]
     Active Substance: MELATONIN
     Indication: Product used for unknown indication
     Dosage: 10MG 2 TAB BEDTIME
     Route: 048
     Dates: start: 20211027
  20. HYDROXYZINE HYDROCHLORIDE [Concomitant]
     Active Substance: HYDROXYZINE HYDROCHLORIDE
     Indication: Product used for unknown indication
     Dosage: 50 MILLIGRAM, 2X/DAY (BID)
     Route: 048
     Dates: start: 20211027
  21. GABAPENTIN [Concomitant]
     Active Substance: GABAPENTIN
     Indication: Product used for unknown indication
     Dosage: 600MG 1 AND HALF TAB
     Route: 048
     Dates: start: 20211027
  22. FAMOTIDINE [Concomitant]
     Active Substance: FAMOTIDINE
     Indication: Product used for unknown indication
     Dosage: 40MG DAILY
     Route: 048
     Dates: start: 20211027
  23. DONEPEZIL HYDROCHLORIDE [Concomitant]
     Active Substance: DONEPEZIL HYDROCHLORIDE
     Indication: Product used for unknown indication
     Dosage: 10MG DAILY
     Route: 048
     Dates: start: 20211027
  24. DIAZEPAM [Concomitant]
     Active Substance: DIAZEPAM
     Indication: Muscle spasms
     Dosage: 2 MILLIGRAM, 3X/DAY (TID)
     Route: 048
     Dates: start: 20211027
  25. DEXAMETHASONE [Concomitant]
     Active Substance: DEXAMETHASONE
     Indication: Brain oedema
     Dosage: 2MG 3 TABLES DAILY
     Route: 048
     Dates: start: 20211027
  26. HYDROMORPHONE HCL [Concomitant]
     Active Substance: HYDROMORPHONE HYDROCHLORIDE
     Indication: Pain
     Dosage: 4MG EVERY HR AS NEEDED
     Route: 048
     Dates: start: 20211029
  27. HYDROMORPHONE HCL [Concomitant]
     Active Substance: HYDROMORPHONE HYDROCHLORIDE
     Indication: Dyspnoea
  28. LORAZEPAM [Concomitant]
     Active Substance: LORAZEPAM
     Indication: Anxiety
     Dosage: 1MG EVERY HR AS NEEDED
     Route: 048
     Dates: start: 20211029
  29. LORAZEPAM [Concomitant]
     Active Substance: LORAZEPAM
     Indication: Agitation
  30. LORAZEPAM [Concomitant]
     Active Substance: LORAZEPAM
     Indication: Myoclonus

REACTIONS (4)
  - Glioblastoma [Not Recovered/Not Resolved]
  - Brain oedema [Not Recovered/Not Resolved]
  - Product prescribing error [Unknown]
  - Prescribed overdose [Unknown]

NARRATIVE: CASE EVENT DATE: 20211027
